FAERS Safety Report 26024770 (Version 1)
Quarter: 2025Q4

REPORT INFORMATION
  Report Type: Spontaneous
  Country: US (occurrence: US)
  Receive Date: 20251111
  Receipt Date: 20251111
  Transmission Date: 20260118
  Serious: Yes (Hospitalization, Other)
  Sender: ROCHE
  Company Number: US-ROCHE-10000429548

PATIENT
  Sex: Female
  Weight: 71 kg

DRUGS (6)
  1. RITUXAN [Suspect]
     Active Substance: RITUXIMAB
     Indication: Encephalitis autoimmune
     Route: 042
     Dates: end: 20250617
  2. RITUXAN [Suspect]
     Active Substance: RITUXIMAB
     Route: 029
  3. ACTEMRA [Suspect]
     Active Substance: TOCILIZUMAB
     Indication: Encephalitis autoimmune
     Route: 042
     Dates: start: 202506
  4. ACTEMRA [Suspect]
     Active Substance: TOCILIZUMAB
     Route: 029
  5. DARATUMUMAB [Suspect]
     Active Substance: DARATUMUMAB
     Indication: Product used for unknown indication
     Route: 065
  6. TYLENOL [Concomitant]
     Active Substance: ACETAMINOPHEN
     Indication: Temperature regulation disorder

REACTIONS (8)
  - Cardiac arrest [Recovered/Resolved with Sequelae]
  - Seizure [Unknown]
  - Respiratory failure [Unknown]
  - Dystonia [Unknown]
  - Amenorrhoea [Recovering/Resolving]
  - Off label use [Unknown]
  - Off label use [Unknown]
  - Nervous system disorder [Unknown]
